FAERS Safety Report 8237826-2 (Version None)
Quarter: 2012Q1

REPORT INFORMATION
  Report Type: 
  Country: None (occurrence: None)
  Receive Date: 20120323
  Receipt Date: 20120316
  Transmission Date: 20120608
  Serious: Yes (Death, Other)
  Sender: FDA-Public Use
  Company Number: DSA_55711_2012

PATIENT
  Age: 90 Year
  Sex: Female

DRUGS (16)
  1. TOPIRAMATE [Concomitant]
  2. XENAZINE [Suspect]
     Indication: DYSKINESIA
     Dosage: (DF ORAL)
     Route: 048
     Dates: start: 20100813, end: 20120305
  3. WELLBUTRIN [Concomitant]
  4. NEURONTIN [Concomitant]
  5. LEVETIRACETAM [Concomitant]
  6. GABAPENTIN [Concomitant]
  7. ACETAMINOPHEN [Concomitant]
  8. ZONISAMIDE [Concomitant]
  9. HYDROCODONE BITARTRATE [Concomitant]
  10. SUMATRIPTAN [Concomitant]
  11. CLONAZEPAM [Concomitant]
  12. KEPPRA [Concomitant]
  13. VITAMIN D [Concomitant]
  14. AMITIZA [Concomitant]
  15. XANAX [Concomitant]
  16. CALCIUM CARBONATE [Concomitant]

REACTIONS (1)
  - DEATH [None]
